FAERS Safety Report 9113388 (Version 1)
Quarter: 2013Q1

REPORT INFORMATION
  Report Type: Spontaneous
  Country: US (occurrence: US)
  Receive Date: 20130201
  Receipt Date: 20130201
  Transmission Date: 20140127
  Serious: No
  Sender: FDA-Public Use
  Company Number: US-009507513-1301USA014122

PATIENT
  Age: 46 Year
  Sex: Male

DRUGS (2)
  1. DULERA [Suspect]
     Indication: BRONCHITIS
     Dosage: UNK
     Route: 055
     Dates: start: 20130128
  2. CLARITIN [Concomitant]

REACTIONS (2)
  - Tremor [Unknown]
  - Off label use [Unknown]
